FAERS Safety Report 8819753 (Version 2)
Quarter: 2015Q3

REPORT INFORMATION
  Report Type: Report from Study
  Country: US (occurrence: US)
  Receive Date: 20121001
  Receipt Date: 20150817
  Transmission Date: 20151125
  Serious: Yes (Other)
  Sender: FDA-Public Use
  Company Number: US-ROCHE-1130181

PATIENT
  Sex: Female

DRUGS (11)
  1. TYLOX [Concomitant]
     Active Substance: ACETAMINOPHEN\OXYCODONE HYDROCHLORIDE
  2. XELODA [Concomitant]
     Active Substance: CAPECITABINE
     Route: 065
  3. ZOFRAN [Concomitant]
     Active Substance: ONDANSETRON HYDROCHLORIDE
     Route: 065
  4. FASLODEX [Concomitant]
     Active Substance: FULVESTRANT
  5. ARIMIDEX [Concomitant]
     Active Substance: ANASTROZOLE
  6. DARVON [Suspect]
     Active Substance: PROPOXYPHENE HYDROCHLORIDE
     Indication: PRODUCT USED FOR UNKNOWN INDICATION
     Route: 065
  7. AREDIA [Concomitant]
     Active Substance: PAMIDRONATE DISODIUM
     Route: 065
  8. TAXOL [Concomitant]
     Active Substance: PACLITAXEL
  9. HERCEPTIN [Suspect]
     Active Substance: TRASTUZUMAB
     Indication: BREAST CANCER
     Route: 042
     Dates: start: 19990611
  10. HERCEPTIN [Suspect]
     Active Substance: TRASTUZUMAB
     Dosage: LOADING DOSE
     Route: 042
     Dates: start: 19981118
  11. HERCEPTIN [Suspect]
     Active Substance: TRASTUZUMAB
     Indication: HEPATIC CANCER
     Dosage: MAINTENANCE DOSE
     Route: 042
     Dates: start: 19981118

REACTIONS (21)
  - Back pain [Unknown]
  - Hallucination [Unknown]
  - Psychomotor hyperactivity [Unknown]
  - Insomnia [Unknown]
  - Dehydration [Unknown]
  - Weight decreased [Unknown]
  - Abdominal pain upper [Unknown]
  - Hypophagia [Unknown]
  - Disease progression [Unknown]
  - Mucosal inflammation [Unknown]
  - Nausea [Unknown]
  - Pain in extremity [Unknown]
  - Vomiting [Unknown]
  - Malaise [Unknown]
  - Abdominal discomfort [Unknown]
  - Rash [Unknown]
  - Depression [Unknown]
  - Pelvic pain [Unknown]
  - Myalgia [Unknown]
  - Dysgeusia [Unknown]
  - Ulcer [Unknown]
